FAERS Safety Report 5348487-4 (Version None)
Quarter: 2007Q2

REPORT INFORMATION
  Report Type: 
  Country: None (occurrence: None)
  Receive Date: 20070606
  Receipt Date: 20070527
  Transmission Date: 20071010
  Serious: Yes (Other)
  Sender: FDA-Public Use
  Company Number: US-PFIZER INC-2007042634

PATIENT
  Sex: Female

DRUGS (9)
  1. CELEBREX [Suspect]
     Indication: COMPRESSION FRACTURE
  2. CELEBREX [Suspect]
     Indication: ARTHRITIS
  3. ACTONEL [Concomitant]
  4. TOPROL-XL [Concomitant]
  5. ACETYLSALICYLIC ACID SRT [Concomitant]
  6. TYLENOL [Concomitant]
  7. CALCIUM CHLORIDE [Concomitant]
  8. VITAMIN CAP [Concomitant]
  9. ASCORBIC ACID [Concomitant]

REACTIONS (10)
  - BLOOD PRESSURE DIASTOLIC [None]
  - DIARRHOEA [None]
  - DRUG INEFFECTIVE [None]
  - EATING DISORDER [None]
  - LOSS OF CONSCIOUSNESS [None]
  - OSTEOPOROSIS [None]
  - OXYGEN SATURATION [None]
  - PAIN [None]
  - SLEEP DISORDER [None]
  - VOMITING [None]
